FAERS Safety Report 21933239 (Version 3)
Quarter: 2023Q2

REPORT INFORMATION
  Report Type: Report from Study
  Country: IT (occurrence: IT)
  Receive Date: 20230131
  Receipt Date: 20230602
  Transmission Date: 20230722
  Serious: Yes (Hospitalization)
  Sender: FDA-Public Use
  Company Number: IT-002147023-NVSC2023IT013829

PATIENT

DRUGS (1)
  1. RUXOLITINIB [Suspect]
     Active Substance: RUXOLITINIB
     Indication: Myelofibrosis
     Dosage: UNK (TOTAL DAILY DOSE 40)
     Route: 065
     Dates: start: 20201019

REACTIONS (5)
  - Bronchitis [Unknown]
  - Epistaxis [Unknown]
  - Epistaxis [Recovered/Resolved]
  - Pruritus [Unknown]
  - Weight increased [Unknown]

NARRATIVE: CASE EVENT DATE: 20210107
